FAERS Safety Report 4766872-6 (Version None)
Quarter: 2005Q3

REPORT INFORMATION
  Report Type: 
  Country: None (occurrence: None)
  Receive Date: 20050909
  Receipt Date: 20050824
  Transmission Date: 20060218
  Serious: Yes (Hospitalization)
  Sender: FDA-Public Use
  Company Number: 230013M05DEU

PATIENT
  Age: 35 Year
  Sex: Female
  Weight: 70 kg

DRUGS (1)
  1. REBIF [Suspect]
     Dosage: 22, 3 IN 1 WEEKS, SUBCUTANEOUS
     Route: 058
     Dates: start: 19990101, end: 20050722

REACTIONS (3)
  - INJECTION SITE ABSCESS [None]
  - INJECTION SITE NECROSIS [None]
  - WHITE BLOOD CELL COUNT INCREASED [None]
